FAERS Safety Report 7393155-0 (Version None)
Quarter: 2011Q2

REPORT INFORMATION
  Report Type: 
  Country: None (occurrence: None)
  Receive Date: 20110404
  Receipt Date: 20110321
  Transmission Date: 20111010
  Serious: Yes (Other)
  Sender: FDA-Public Use
  Company Number: GB-MYLANLABS-2011S1005908

PATIENT
  Sex: Female
  Weight: 44.5 kg

DRUGS (5)
  1. ATENOLOL [Suspect]
     Indication: PRODUCT USED FOR UNKNOWN INDICATION
  2. AMITRIPTYLINE [Suspect]
  3. AMITRIPTYLINE [Suspect]
     Indication: EATING DISORDER
  4. AMITRIPTYLINE [Suspect]
     Indication: DEPRESSION
  5. AMITRIPTYLINE [Suspect]

REACTIONS (3)
  - MALAISE [None]
  - HYPERTENSION [None]
  - PALPITATIONS [None]
